FAERS Safety Report 9135429 (Version 1)
Quarter: 2013Q1

REPORT INFORMATION
  Report Type: Spontaneous
  Country: None (occurrence: US)
  Receive Date: 20130304
  Receipt Date: 20130304
  Transmission Date: 20140127
  Serious: No
  Sender: FDA-Public Use
  Company Number: US-ALLERGAN-1212714US

PATIENT
  Age: 31 Year
  Sex: Female

DRUGS (2)
  1. TAZORAC [Suspect]
     Indication: PRODUCT USED FOR UNKNOWN INDICATION
     Dosage: UNK UNK, QD
     Route: 061
  2. METROGEL [Suspect]
     Indication: ROSACEA
     Dosage: BEFORE BEDTIME
     Route: 061
     Dates: start: 20120823

REACTIONS (1)
  - Skin exfoliation [Recovered/Resolved]
